FAERS Safety Report 21138705 (Version 1)
Quarter: 2022Q3

REPORT INFORMATION
  Report Type: Spontaneous
  Country: ZA (occurrence: ZA)
  Receive Date: 20220727
  Receipt Date: 20220727
  Transmission Date: 20221027
  Serious: No
  Sender: FDA-Public Use
  Company Number: ZA-LUPIN PHARMACEUTICALS INC.-2022-09750

PATIENT
  Age: 56 Year

DRUGS (1)
  1. AMLODIPINE BESYLATE [Suspect]
     Active Substance: AMLODIPINE BESYLATE
     Indication: Hypertension
     Dosage: 5 MILLIGRAM
     Route: 048

REACTIONS (6)
  - Dyspnoea [Unknown]
  - Muscular weakness [Unknown]
  - Arthralgia [Unknown]
  - Peripheral swelling [Unknown]
  - Malaise [Unknown]
  - Paraesthesia [Unknown]
